FAERS Safety Report 21843089 (Version 1)
Quarter: 2023Q1

REPORT INFORMATION
  Report Type: Spontaneous
  Country: IT (occurrence: IT)
  Receive Date: 20230110
  Receipt Date: 20230110
  Transmission Date: 20230418
  Serious: Yes (Life-Threatening)
  Sender: FDA-Public Use
  Company Number: None

PATIENT

DRUGS (3)
  1. ONCASPAR [Suspect]
     Active Substance: PEGASPARGASE
     Indication: Acute lymphocytic leukaemia
     Dosage: 1650 [IU]
     Route: 042
     Dates: start: 20220628, end: 20220628
  2. PREDNISONE [Concomitant]
     Active Substance: PREDNISONE
     Indication: Acute lymphocytic leukaemia
     Dosage: 5 + 2.5 + 2.5 MG (IN DELAY)
     Route: 048
  3. FETROJA [Concomitant]
     Active Substance: CEFIDEROCOL SULFATE TOSYLATE
     Indication: Klebsiella infection
     Dosage: 900 MG IN 3 HOURS AT 7, 15, 23 FOR 14 DAYS
     Route: 042
     Dates: start: 20220616

REACTIONS (4)
  - Tachycardia [Recovered/Resolved]
  - Urticaria [Recovered/Resolved]
  - Bradycardia [Recovered/Resolved]
  - Vomiting [Recovered/Resolved]

NARRATIVE: CASE EVENT DATE: 20220628
